FAERS Safety Report 6686499-9 (Version None)
Quarter: 2010Q2

REPORT INFORMATION
  Report Type: 
  Country: None (occurrence: None)
  Receive Date: 20100419
  Receipt Date: 20100413
  Transmission Date: 20101027
  Serious: Yes (Death, Hospitalization)
  Sender: FDA-Public Use
  Company Number: FR-ROCHE-696308

PATIENT
  Sex: Female

DRUGS (14)
  1. VALGANCICLOVIR HCL [Suspect]
     Indication: DRUG USE FOR UNKNOWN INDICATION
     Dosage: DRUG NAME REPORTED AS ROVALCYTE
     Route: 065
  2. VALGANCICLOVIR HCL [Suspect]
     Route: 065
     Dates: start: 20100301, end: 20100323
  3. MYCOPHENOLATE MOFETIL [Suspect]
     Dosage: ROUTE REPORTED AS PER OS
     Route: 048
     Dates: start: 20090601
  4. ZYVOXID [Suspect]
     Route: 048
     Dates: end: 20100324
  5. CORTANCYL [Concomitant]
     Dosage: FREQUENCY: PER DAY
  6. TACROLIMUS [Concomitant]
  7. CERTICAN [Concomitant]
     Dates: start: 20100111, end: 20100121
  8. TENORMIN [Concomitant]
     Dates: start: 20090627
  9. BACTRIM [Concomitant]
     Dosage: DRUG NAME REPORTED AS BACTRIM FAIBLE
     Dates: start: 20090831
  10. ASPEGIC 1000 [Concomitant]
     Dates: start: 20091217
  11. TAHOR [Concomitant]
     Dates: start: 20090608
  12. OMEPRAZOLE [Concomitant]
     Dates: start: 20091008
  13. BICARBONATE DE SODIUM [Concomitant]
     Dates: start: 20090909
  14. TOPALGIC [Concomitant]
     Dates: start: 20091216, end: 20091217

REACTIONS (2)
  - PANCYTOPENIA [None]
  - SEPTIC SHOCK [None]
